FAERS Safety Report 12780447 (Version 2)
Quarter: 2016Q4

REPORT INFORMATION
  Report Type: Report from Study
  Country: US (occurrence: US)
  Receive Date: 20160926
  Receipt Date: 20161108
  Transmission Date: 20170207
  Serious: Yes (Hospitalization)
  Sender: FDA-Public Use
  Company Number: US-PFIZER INC-2016436260

PATIENT
  Age: 78 Year
  Sex: Male
  Weight: 51.5 kg

DRUGS (1)
  1. XALKORI [Suspect]
     Active Substance: CRIZOTINIB
     Indication: NEOPLASM MALIGNANT
     Dosage: UNK, TWICE DAILY
     Route: 048
     Dates: start: 20151223, end: 20160304

REACTIONS (3)
  - Decreased appetite [Unknown]
  - Adult failure to thrive [Unknown]
  - Asthenia [Unknown]

NARRATIVE: CASE EVENT DATE: 20160309
